FAERS Safety Report 6895129-2 (Version None)
Quarter: 2010Q3

REPORT INFORMATION
  Report Type: 
  Country: None (occurrence: None)
  Receive Date: 20100802
  Receipt Date: 20100726
  Transmission Date: 20110219
  Serious: Yes (Other)
  Sender: FDA-Public Use
  Company Number: CHPA2010US12098

PATIENT
  Age: 70 Year
  Sex: Male
  Weight: 72.562 kg

DRUGS (2)
  1. BENEFIBER FIBER SUPPLEMENT SUGAR FREE (NCH) [Suspect]
     Indication: FAECES HARD
     Dosage: 3 TSP, UNK
     Route: 048
     Dates: start: 20100721, end: 20100722
  2. BENEFIBER FIBER SUPPLEMENT SUGAR FREE (NCH) [Suspect]
     Dosage: 1 OR 2 TABLESPOONS
     Route: 048
     Dates: start: 20051101, end: 20051101

REACTIONS (4)
  - INCORRECT DOSE ADMINISTERED [None]
  - INTESTINAL HAEMORRHAGE [None]
  - OFF LABEL USE [None]
  - RECTAL DISCHARGE [None]
